FAERS Safety Report 16652055 (Version 1)
Quarter: 2019Q3

REPORT INFORMATION
  Report Type: Spontaneous
  Country: GB (occurrence: GB)
  Receive Date: 20190731
  Receipt Date: 20190731
  Transmission Date: 20191004
  Serious: Yes (Hospitalization)
  Sender: FDA-Public Use
  Company Number: GB-EISAI MEDICAL RESEARCH-EC-2019-059102

PATIENT
  Age: 55 Year
  Sex: Male
  Weight: 77 kg

DRUGS (1)
  1. HALAVEN [Suspect]
     Active Substance: ERIBULIN MESYLATE
     Indication: LIPOSARCOMA
     Route: 041
     Dates: start: 20190226, end: 20190508

REACTIONS (3)
  - Anaemia [Unknown]
  - Fatigue [Unknown]
  - Abdominal pain [Recovered/Resolved]

NARRATIVE: CASE EVENT DATE: 20190303
